FAERS Safety Report 24669688 (Version 1)
Quarter: 2024Q4

REPORT INFORMATION
  Report Type: Spontaneous
  Country: GB (occurrence: GB)
  Receive Date: 20241127
  Receipt Date: 20241127
  Transmission Date: 20250114
  Serious: Yes (Other)
  Sender: AZURITY PHARMACEUTICALS
  Company Number: GB-AZURITY PHARMACEUTICALS, INC.-AZR202411-001123

PATIENT
  Age: 65 Year
  Sex: Male

DRUGS (2)
  1. VANCOMYCIN HYDROCHLORIDE [Suspect]
     Active Substance: VANCOMYCIN HYDROCHLORIDE
     Indication: Enterococcal bacteraemia
     Dosage: UNK
     Route: 042
  2. DALBAVANCIN [Concomitant]
     Active Substance: DALBAVANCIN
     Indication: Enterococcal bacteraemia
     Dosage: 6 WEEKLY DALBAVANCIN FOR THE NEXT 12 MONTHS.
     Route: 065

REACTIONS (2)
  - Pathogen resistance [Recovered/Resolved]
  - Bacteraemia [Recovered/Resolved]
